FAERS Safety Report 17474872 (Version 3)
Quarter: 2022Q3

REPORT INFORMATION
  Report Type: Spontaneous
  Country: US (occurrence: None)
  Receive Date: 20200228
  Receipt Date: 20220927
  Transmission Date: 20221027
  Serious: Yes (Other)
  Sender: FDA-Public Use
  Company Number: 2020SE26183

PATIENT
  Age: 21295 Day
  Sex: Female
  Weight: 65.8 kg

DRUGS (68)
  1. NEXIUM [Suspect]
     Active Substance: ESOMEPRAZOLE MAGNESIUM
     Indication: Gastrooesophageal reflux disease
     Route: 048
     Dates: start: 200102, end: 202002
  2. NEXIUM [Suspect]
     Active Substance: ESOMEPRAZOLE MAGNESIUM
     Indication: Gastrooesophageal reflux disease
     Route: 048
     Dates: start: 2001, end: 2020
  3. NEXIUM 24HR [Suspect]
     Active Substance: ESOMEPRAZOLE MAGNESIUM
     Indication: Gastrooesophageal reflux disease
     Route: 048
     Dates: start: 200102, end: 202002
  4. NEXIUM 24HR [Suspect]
     Active Substance: ESOMEPRAZOLE MAGNESIUM
     Indication: Gastrooesophageal reflux disease
     Route: 048
     Dates: start: 2014, end: 2020
  5. NEXIUM 24HR [Suspect]
     Active Substance: ESOMEPRAZOLE MAGNESIUM
     Indication: Gastrooesophageal reflux disease
     Route: 048
     Dates: start: 20150101, end: 20201231
  6. PRILOSEC [Suspect]
     Active Substance: OMEPRAZOLE MAGNESIUM
     Indication: Gastrooesophageal reflux disease
     Route: 048
     Dates: start: 200102, end: 202002
  7. PRILOSEC [Suspect]
     Active Substance: OMEPRAZOLE MAGNESIUM
     Indication: Gastrooesophageal reflux disease
     Route: 048
     Dates: start: 2001, end: 2020
  8. PRILOSEC [Suspect]
     Active Substance: OMEPRAZOLE MAGNESIUM
     Indication: Gastrooesophageal reflux disease
     Dosage: GENERIC
     Route: 065
     Dates: end: 2012
  9. PRILOSEC [Suspect]
     Active Substance: OMEPRAZOLE MAGNESIUM
     Indication: Gastrooesophageal reflux disease
     Dosage: GENERIC
     Route: 065
     Dates: start: 2011, end: 2017
  10. PRILOSEC OTC [Suspect]
     Active Substance: OMEPRAZOLE MAGNESIUM
     Indication: Gastrooesophageal reflux disease
     Route: 048
     Dates: start: 200102, end: 202002
  11. PRILOSEC OTC [Suspect]
     Active Substance: OMEPRAZOLE MAGNESIUM
     Indication: Gastrooesophageal reflux disease
     Route: 048
     Dates: start: 2003, end: 2020
  12. PREVACID [Suspect]
     Active Substance: LANSOPRAZOLE
     Indication: Gastrooesophageal reflux disease
     Route: 065
     Dates: start: 200102, end: 202002
  13. PREVACID [Suspect]
     Active Substance: LANSOPRAZOLE
     Indication: Gastrooesophageal reflux disease
     Route: 065
     Dates: start: 2001, end: 2020
  14. PREVACID 24 HR [Suspect]
     Active Substance: LANSOPRAZOLE
     Indication: Gastrooesophageal reflux disease
     Route: 065
     Dates: start: 2001, end: 2020
  15. PROTONIX [Suspect]
     Active Substance: PANTOPRAZOLE SODIUM
     Indication: Gastrooesophageal reflux disease
     Dosage: CURRENT
     Route: 065
     Dates: start: 2017
  16. ATENOLOL [Concomitant]
     Active Substance: ATENOLOL
     Indication: Hypertension
     Dates: start: 20100527, end: 201208
  17. VERAPAMIL [Concomitant]
     Active Substance: VERAPAMIL HYDROCHLORIDE
     Indication: Angina pectoris
     Dates: start: 201003
  18. VERAPAMIL [Concomitant]
     Active Substance: VERAPAMIL HYDROCHLORIDE
     Indication: Chest pain
     Dates: start: 201003
  19. HUMULIN NOS [Concomitant]
     Active Substance: INSULIN HUMAN
     Indication: Diabetes mellitus
     Dates: start: 201002
  20. AMITRIPTYLINE [Concomitant]
     Active Substance: AMITRIPTYLINE
     Indication: Depression
     Dates: start: 201007
  21. SIMVASTATIN [Concomitant]
     Active Substance: SIMVASTATIN
     Indication: Blood cholesterol increased
     Dates: start: 201007, end: 201105
  22. LOVASTATIN [Concomitant]
     Active Substance: LOVASTATIN
     Indication: Blood cholesterol increased
     Dates: start: 201105
  23. TRIAMTERENE [Concomitant]
     Active Substance: TRIAMTERENE
     Indication: Diuretic therapy
     Dates: start: 201007
  24. AMLODIPINE [Concomitant]
     Active Substance: AMLODIPINE BESYLATE
     Indication: Hypertension
     Dates: start: 201208
  25. METFORMIN [Concomitant]
     Active Substance: METFORMIN HYDROCHLORIDE
     Indication: Diabetes mellitus
     Dates: start: 201302
  26. RANITIDINE [Concomitant]
     Active Substance: RANITIDINE
     Dates: start: 201403, end: 201905
  27. TUMS [Concomitant]
     Active Substance: CALCIUM CARBONATE
     Dates: start: 199901, end: 200002
  28. TUMS [Concomitant]
     Active Substance: CALCIUM CARBONATE
     Dates: start: 200102
  29. PEPTO-BISMOL [Concomitant]
     Active Substance: BISMUTH SUBSALICYLATE
     Dates: start: 199901, end: 200002
  30. ROLAIDS [Concomitant]
     Active Substance: CALCIUM CARBONATE\MAGNESIUM HYDROXIDE
     Dates: start: 199901, end: 200002
  31. MAALOX ANTACID [Concomitant]
     Active Substance: ALUMINUM HYDROXIDE\DIMETHICONE\MAGNESIUM HYDROXIDE
     Dates: start: 199901, end: 200002
  32. ALKA-SELTZER [Concomitant]
     Active Substance: ANHYDROUS CITRIC ACID\ASPIRIN\SODIUM BICARBONATE
     Dates: start: 199901, end: 200002
  33. MYLANTA [Concomitant]
     Active Substance: ALUMINUM HYDROXIDE\DIMETHICONE\MAGNESIUM HYDROXIDE
     Dates: start: 199901, end: 200002
  34. NIFEDIPINE [Concomitant]
     Active Substance: NIFEDIPINE
  35. LOSARTAN POTASSIUM [Concomitant]
     Active Substance: LOSARTAN POTASSIUM
  36. FUROSEMIDE [Concomitant]
     Active Substance: FUROSEMIDE
  37. NAPROXEN [Concomitant]
     Active Substance: NAPROXEN
  38. AMOXICILLIN [Concomitant]
     Active Substance: AMOXICILLIN
  39. HYDROCHLOROTHIAZIDE\TRIAMTERENE [Concomitant]
     Active Substance: HYDROCHLOROTHIAZIDE\TRIAMTERENE
  40. VITAMIN D [Concomitant]
     Active Substance: VITAMIN D NOS
  41. AMITRIPTYLINE [Concomitant]
     Active Substance: AMITRIPTYLINE
  42. SIMVASTATIN [Concomitant]
     Active Substance: SIMVASTATIN
  43. OXYBUTYNIN [Concomitant]
     Active Substance: OXYBUTYNIN
  44. ACETAMINOPHEN\OXYCODONE HYDROCHLORIDE [Concomitant]
     Active Substance: ACETAMINOPHEN\OXYCODONE HYDROCHLORIDE
  45. METFORMIN HYDROCHLORIDE [Concomitant]
     Active Substance: METFORMIN HYDROCHLORIDE
  46. FLUTICASONE [Concomitant]
     Active Substance: FLUTICASONE
  47. AMLODIPINE BESYLATE [Concomitant]
     Active Substance: AMLODIPINE BESYLATE
  48. VOLTAREN [Concomitant]
     Active Substance: DICLOFENAC SODIUM
  49. NASONEX [Concomitant]
     Active Substance: MOMETASONE FUROATE
  50. GABAPENTIN [Concomitant]
     Active Substance: GABAPENTIN
  51. AFLURIA NOS [Concomitant]
     Active Substance: INFLUENZA VIRUS VACCINE TRIVALENT TYPE A+B AFLURIA
  52. ALLOPURINOL [Concomitant]
     Active Substance: ALLOPURINOL
  53. FLUCONAZOLE [Concomitant]
     Active Substance: FLUCONAZOLE
  54. SODIUM BICARBONATE/ACETIC ACID/TROMETAMOL/SODIUM PHOSPHATE [Concomitant]
  55. FUROSEMIDE [Concomitant]
     Active Substance: FUROSEMIDE
  56. RENVELA [Concomitant]
     Active Substance: SEVELAMER CARBONATE
  57. CLONIDINE [Concomitant]
     Active Substance: CLONIDINE
  58. CARVEDILOL [Concomitant]
     Active Substance: CARVEDILOL
  59. METOLAZONE [Concomitant]
     Active Substance: METOLAZONE
  60. MOMETASONE FUROATE [Concomitant]
     Active Substance: MOMETASONE FUROATE
  61. CALCIUM ACETATE [Concomitant]
     Active Substance: CALCIUM ACETATE
  62. LEVOFLOXACIN [Concomitant]
     Active Substance: LEVOFLOXACIN
  63. MUPIROCIN [Concomitant]
     Active Substance: MUPIROCIN
  64. PRAVASTATIN SODIUM [Concomitant]
     Active Substance: PRAVASTATIN SODIUM
  65. VENTOLIN [Concomitant]
     Active Substance: ALBUTEROL SULFATE
  66. SILDENAFIL [Concomitant]
     Active Substance: SILDENAFIL
  67. CYCLOBENZAPRINE HYDROCHLORIDE [Concomitant]
     Active Substance: CYCLOBENZAPRINE HYDROCHLORIDE
  68. EC-NAPROSYN [Concomitant]
     Active Substance: NAPROXEN

REACTIONS (9)
  - Chronic kidney disease [Unknown]
  - End stage renal disease [Not Recovered/Not Resolved]
  - Renal failure [Unknown]
  - Acute kidney injury [Unknown]
  - Nephrogenic anaemia [Unknown]
  - Metabolic acidosis [Unknown]
  - Hyperkalaemia [Unknown]
  - Chronic kidney disease-mineral and bone disorder [Unknown]
  - Gastrooesophageal reflux disease [Not Recovered/Not Resolved]

NARRATIVE: CASE EVENT DATE: 20140214
